FAERS Safety Report 23087251 (Version 1)
Quarter: 2023Q4

REPORT INFORMATION
  Report Type: Spontaneous
  Country: US (occurrence: US)
  Receive Date: 20231020
  Receipt Date: 20231020
  Transmission Date: 20240110
  Serious: No
  Sender: FDA-Public Use
  Company Number: US-GLENMARK PHARMACEUTICALS-2023GMK082129

PATIENT

DRUGS (3)
  1. ESTRADIOL [Suspect]
     Active Substance: ESTRADIOL
     Indication: Menopausal symptoms
     Dosage: UNK,  TWICE A WEEK
     Route: 067
  2. CALCIUM [Concomitant]
     Active Substance: CALCIUM
     Indication: Vitamin supplementation
     Dosage: UNK
     Route: 065
  3. VITAMINS [Concomitant]
     Active Substance: VITAMINS
     Indication: Vitamin supplementation
     Dosage: UNK
     Route: 065

REACTIONS (5)
  - Injury associated with device [Recovered/Resolved]
  - Product use in unapproved indication [Unknown]
  - Wrong technique in device usage process [Unknown]
  - Device defective [Unknown]
  - Product quality issue [Unknown]
